FAERS Safety Report 11105479 (Version 2)
Quarter: 2015Q2

REPORT INFORMATION
  Report Type: Spontaneous
  Country: US (occurrence: US)
  Receive Date: 20150512
  Receipt Date: 20150620
  Transmission Date: 20150821
  Serious: Yes (Hospitalization, Other)
  Sender: FDA-Public Use
  Company Number: US-AUROBINDO-AUR-APL-2015-04153

PATIENT
  Age: 66 Year
  Sex: Female

DRUGS (8)
  1. MELOXICAM. [Suspect]
     Active Substance: MELOXICAM
     Indication: PRODUCT USED FOR UNKNOWN INDICATION
     Dosage: 15 ?G, ONCE A DAY
     Route: 065
     Dates: start: 2012
  2. ATORVASTATIN [Concomitant]
     Active Substance: ATORVASTATIN
     Indication: PRODUCT USED FOR UNKNOWN INDICATION
     Dosage: 40 MG, ONCE A DAY
     Route: 065
     Dates: start: 2009
  3. NIFEDICAL XL [Concomitant]
     Active Substance: NIFEDIPINE
     Indication: PRODUCT USED FOR UNKNOWN INDICATION
     Dosage: 60 MG, ONCE A DAY
     Route: 065
     Dates: start: 1997
  4. METFORMIN [Suspect]
     Active Substance: METFORMIN HYDROCHLORIDE
     Indication: DIABETES MELLITUS
     Dosage: 500 MG, UNK
     Route: 065
     Dates: start: 20141224
  5. L-THYROXINE                        /00068001/ [Concomitant]
     Indication: THYROID DISORDER
     Dosage: 100 ?G, ONCE A DAY
     Route: 065
     Dates: start: 2003
  6. JANUVIA [Suspect]
     Active Substance: SITAGLIPTIN PHOSPHATE
     Indication: DIABETES MELLITUS
     Dosage: 100 MG, ONCE A DAY
     Route: 065
     Dates: start: 20141224
  7. MELOXIN                            /00089202/ [Concomitant]
     Indication: PRODUCT USED FOR UNKNOWN INDICATION
     Dosage: 15 MG, UNK
     Route: 065
  8. LEVEMIR [Suspect]
     Active Substance: INSULIN DETEMIR
     Indication: DIABETES MELLITUS
     Dosage: 20 U, UNK
     Route: 065
     Dates: start: 20141224

REACTIONS (3)
  - Cerebrovascular accident [Not Recovered/Not Resolved]
  - Epilepsy [Not Recovered/Not Resolved]
  - Diabetes mellitus [Not Recovered/Not Resolved]

NARRATIVE: CASE EVENT DATE: 20130904
